FAERS Safety Report 9607787 (Version 1)
Quarter: 2013Q4

REPORT INFORMATION
  Report Type: Spontaneous
  Country: GB (occurrence: None)
  Receive Date: 20131007
  Receipt Date: 20131007
  Transmission Date: 20140711
  Serious: Yes (Hospitalization)
  Sender: FDA-Public Use
  Company Number: GB-ALKEM-000174

PATIENT
  Sex: Male

DRUGS (7)
  1. CEPHALEXIN [Suspect]
     Indication: LOWER RESPIRATORY TRACT INFECTION
     Dosage: 250.00 MG-4.00 TIMES PER 1.0DAYS
     Route: 048
     Dates: start: 20110604, end: 20110611
  2. LAXIDO [Concomitant]
  3. PARACETAMOL [Concomitant]
  4. ZOMORPH [Concomitant]
  5. TIOTROPIUM [Concomitant]
  6. SEREVENT [Concomitant]
  7. TEMAZEPAM [Concomitant]

REACTIONS (4)
  - Chills [None]
  - Cough [None]
  - Hyperhidrosis [None]
  - Treatment failure [None]
